FAERS Safety Report 11231432 (Version 1)
Quarter: 2015Q3

REPORT INFORMATION
  Report Type: Spontaneous
  Country: FR (occurrence: FR)
  Receive Date: 20150701
  Receipt Date: 20150701
  Transmission Date: 20151125
  Serious: Yes (Other)
  Sender: FDA-Public Use
  Company Number: FR-GLAXOSMITHKLINE-FR2015GSK093764

PATIENT
  Age: 64 Year
  Sex: Male

DRUGS (1)
  1. CEFUROXIME. [Suspect]
     Active Substance: CEFUROXIME
     Indication: PRODUCT USED FOR UNKNOWN INDICATION
     Dosage: 0.1ML OF A 10.0 MG/ML SOLUTION
     Route: 065

REACTIONS (4)
  - Retinal detachment [Recovered/Resolved]
  - Blindness [Recovered/Resolved]
  - Retinal oedema [Recovered/Resolved]
  - Retinal toxicity [Recovered/Resolved]
